FAERS Safety Report 6614971-6 (Version None)
Quarter: 2010Q1

REPORT INFORMATION
  Report Type: 
  Country: None (occurrence: None)
  Receive Date: 20100305
  Receipt Date: 20100222
  Transmission Date: 20100710
  Serious: Yes (Hospitalization)
  Sender: FDA-Public Use
  Company Number: US-ELI_LILLY_AND_COMPANY-US201002006169

PATIENT
  Sex: Male
  Weight: 72.1 kg

DRUGS (6)
  1. GEMCITABINE HCL [Suspect]
     Indication: METASTATIC RENAL CELL CARCINOMA
     Dosage: 1000 MG/M2, OTHER
     Route: 042
     Dates: start: 20091214
  2. SUNITINIB MALATE [Suspect]
     Indication: METASTATIC RENAL CELL CARCINOMA
     Dosage: 37.5 MG, DAILY (1/D)
     Route: 048
     Dates: start: 20091214
  3. SIMVASTATIN [Concomitant]
     Dates: start: 20091020
  4. METOPROLOL TARTRATE [Concomitant]
     Dates: start: 20091020
  5. TYLENOL                                 /SCH/ [Concomitant]
     Dates: start: 20091020
  6. BACTRIM [Concomitant]
     Dates: start: 20091117

REACTIONS (2)
  - BACTERAEMIA [None]
  - FEBRILE NEUTROPENIA [None]
